FAERS Safety Report 18897203 (Version 1)
Quarter: 2021Q1

REPORT INFORMATION
  Report Type: Spontaneous
  Country: US (occurrence: US)
  Receive Date: 20210215
  Receipt Date: 20210215
  Transmission Date: 20210420
  Serious: Yes (Other)
  Sender: FDA-Public Use
  Company Number: US-ASTRAZENECA-2021A049128

PATIENT
  Sex: Male
  Weight: 89.8 kg

DRUGS (1)
  1. FARXIGA [Suspect]
     Active Substance: DAPAGLIFLOZIN PROPANEDIOL
     Indication: CARDIAC DISORDER
     Route: 048

REACTIONS (2)
  - Penile pain [Unknown]
  - Fungal infection [Unknown]

NARRATIVE: CASE EVENT DATE: 20210205
